FAERS Safety Report 21612279 (Version 1)
Quarter: 2022Q4

REPORT INFORMATION
  Report Type: Spontaneous
  Country: IT (occurrence: IT)
  Receive Date: 20221118
  Receipt Date: 20221118
  Transmission Date: 20230112
  Serious: Yes (Other)
  Sender: FDA-Public Use
  Company Number: None

PATIENT
  Age: 37 Year
  Sex: Female
  Weight: 82 kg

DRUGS (5)
  1. VINCRISTINE SULFATE [Suspect]
     Active Substance: VINCRISTINE SULFATE
     Indication: Primary mediastinal large B-cell lymphoma
     Dosage: 0.75 MG/DAY (DAYS 1-4 OF THE TREATMENT CYCLE), DURATION: 3 DAYS
     Route: 065
     Dates: start: 20220928, end: 20221001
  2. ETOPOSIDE [Suspect]
     Active Substance: ETOPOSIDE
     Indication: Non-Hodgkin^s lymphoma
     Dosage: 161.14 MG/DAY (DAYS 1-4 OF THE TREATMENT CYCLE), DURATION: 3 DAYS
     Dates: start: 20220928, end: 20221001
  3. RITUXIMAB [Suspect]
     Active Substance: RITUXIMAB
     Indication: Non-Hodgkin^s lymphoma
     Dosage: 699.38 MG
     Dates: start: 20221003, end: 20221003
  4. CYCLOPHOSPHAMIDE [Suspect]
     Active Substance: CYCLOPHOSPHAMIDE
     Indication: Non-Hodgkin^s lymphoma
     Dosage: 2417.04 MG
     Dates: start: 20221002, end: 20221002
  5. METHYLPREDNISOLONE HEMISUCCINATE [Concomitant]
     Active Substance: METHYLPREDNISOLONE HEMISUCCINATE
     Indication: Non-Hodgkin^s lymphoma
     Dosage: 111.90 MG/DAY, DURATION: 5 DAYS
     Dates: start: 20220928, end: 20221003

REACTIONS (2)
  - Pancytopenia [Not Recovered/Not Resolved]
  - Mucosal inflammation [Not Recovered/Not Resolved]

NARRATIVE: CASE EVENT DATE: 20221010
